FAERS Safety Report 5566436-0 (Version None)
Quarter: 2007Q4

REPORT INFORMATION
  Report Type: 
  Country: None (occurrence: None)
  Receive Date: 20071218
  Receipt Date: 20071218
  Transmission Date: 20080405
  Serious: Yes (Hospitalization, Other)
  Sender: FDA-Public Use
  Company Number: None

PATIENT
  Age: 42 Year
  Sex: Female
  Weight: 92.9874 kg

DRUGS (2)
  1. CYCLOBENAZPRINE [Suspect]
     Indication: INTERVERTEBRAL DISC PROTRUSION
     Dosage: 1 TABLET AT BEDTIME PO  (DURATION: ABOUT A MONTH)
     Route: 048
  2. CYCLOBENAZPRINE [Suspect]
     Indication: MUSCLE RELAXANT THERAPY
     Dosage: 1 TABLET AT BEDTIME PO  (DURATION: ABOUT A MONTH)
     Route: 048

REACTIONS (1)
  - FACIAL PALSY [None]
